FAERS Safety Report 7555762-1 (Version None)
Quarter: 2011Q2

REPORT INFORMATION
  Report Type: 
  Country: None (occurrence: None)
  Receive Date: 20110618
  Receipt Date: 20090921
  Transmission Date: 20111010
  Serious: Yes (Death, Other)
  Sender: FDA-Public Use
  Company Number: US-BAYER-200937869NA

PATIENT
  Age: 64 Year
  Sex: Female
  Weight: 100 kg

DRUGS (25)
  1. FUROSEMIDE [Concomitant]
     Dosage: 10 MG, UNK
     Dates: start: 20050411
  2. CRYOPRECIPITATES [Concomitant]
     Dosage: 100 ML, UNK
     Route: 042
  3. TRASYLOL [Suspect]
     Indication: AORTIC VALVE REPLACEMENT
     Dosage: 4000 U
     Route: 042
     Dates: start: 20050411, end: 20050411
  4. ZOCOR [Concomitant]
     Dosage: 40 MG, QD
     Route: 048
  5. DIPHENHYDRAMINE HCL [Concomitant]
     Dosage: 50 MG, UNK
     Dates: start: 20050411
  6. OPTIRAY 350 [IODINE,IOVERSOL] [Concomitant]
     Indication: CATHETERISATION CARDIAC
     Dosage: UNK
     Dates: start: 20050408
  7. TRASYLOL [Suspect]
     Indication: CORONARY ARTERY BYPASS
     Dosage: 1 ML
     Route: 042
     Dates: start: 20050411, end: 20050411
  8. THIOPENTAL SODIUM [Concomitant]
     Dosage: 175 MG, UNK
     Dates: start: 20050411, end: 20050411
  9. FRESH FROZEN PLASMA [Concomitant]
     Dosage: 887 ML, UNK
     Route: 042
  10. HYDROCHLOROTHIAZIDE [Concomitant]
     Dosage: 160 MG, QD
     Route: 048
  11. ANCEF [Concomitant]
     Dosage: 1 G, UNK
     Route: 042
     Dates: start: 20050411
  12. PROTAMINE SULFATE [Concomitant]
     Dosage: 280 MG, UNK
     Dates: start: 20050411
  13. PLATELETS [Concomitant]
     Dosage: 780 ML, UNK
     Route: 042
  14. TRASYLOL [Suspect]
     Dosage: 2000000 U
     Route: 042
     Dates: start: 20050411, end: 20050411
  15. HEPARIN [Concomitant]
     Dosage: 5000 U, UNK
     Route: 042
     Dates: start: 20050406
  16. FENTANYL-100 [Concomitant]
     Dosage: 2500 MCG
     Dates: start: 20050411
  17. TRASYLOL [Suspect]
  18. DIOVAN [Concomitant]
     Dosage: 120 MG, QD
     Route: 048
     Dates: end: 20050406
  19. MIDAZOLAM HCL [Concomitant]
     Dosage: 25 MG, UNK
     Dates: start: 20050411
  20. SUCCINYLCHOLINE CHLORIDE [Concomitant]
     Dosage: 140 MG, UNK
     Dates: start: 20050411, end: 20050411
  21. PANCURONIUM BROMIDE [Concomitant]
     Dosage: 15 MG, UNK
     Dates: start: 20050411, end: 20050411
  22. ACETYLSALICYLIC ACID SRT [Concomitant]
     Dosage: 81 MG, QD
     Route: 048
  23. INSULIN [Concomitant]
     Dosage: UNK
     Route: 042
     Dates: start: 20050411
  24. EPINEPHRINE [Concomitant]
     Dosage: 4MCG
     Dates: start: 20050411
  25. PHENYLEPHRINE HCL [Concomitant]
     Dosage: 0.9 MG, UNK
     Dates: start: 20050411

REACTIONS (13)
  - UNEVALUABLE EVENT [None]
  - RENAL INJURY [None]
  - FEAR [None]
  - RENAL IMPAIRMENT [None]
  - PAIN [None]
  - EMOTIONAL DISTRESS [None]
  - DEATH [None]
  - MULTI-ORGAN FAILURE [None]
  - RENAL FAILURE [None]
  - INJURY [None]
  - STRESS [None]
  - ANXIETY [None]
  - ANHEDONIA [None]
